FAERS Safety Report 24313900 (Version 1)
Quarter: 2024Q3

REPORT INFORMATION
  Report Type: Spontaneous
  Country: US (occurrence: US)
  Receive Date: 20240912
  Receipt Date: 20240912
  Transmission Date: 20241016
  Serious: No
  Sender: SUNOVION
  Company Number: US-UROVANT SCIENCES GMBH-202206-URV-000831

PATIENT

DRUGS (1)
  1. GEMTESA [Suspect]
     Active Substance: VIBEGRON
     Indication: Cystitis interstitial
     Dosage: 75 MG, QD
     Route: 048

REACTIONS (7)
  - Nocturia [Not Recovered/Not Resolved]
  - Abdominal discomfort [Not Recovered/Not Resolved]
  - Insomnia [Not Recovered/Not Resolved]
  - Bladder spasm [Not Recovered/Not Resolved]
  - Therapeutic product effect decreased [Unknown]
  - Product use in unapproved indication [Unknown]
  - Product use issue [Unknown]
